FAERS Safety Report 22606978 (Version 1)
Quarter: 2023Q2

REPORT INFORMATION
  Report Type: Spontaneous
  Country: US (occurrence: None)
  Receive Date: 20230611
  Receipt Date: 20230611
  Transmission Date: 20230721
  Serious: Yes (Other)
  Sender: FDA-Public Use
  Company Number: None

PATIENT
  Age: 64 Year
  Sex: Male
  Weight: 99.45 kg

DRUGS (11)
  1. TADALAFIL [Suspect]
     Active Substance: TADALAFIL
     Dosage: OTHER QUANTITY : 6 TABLET(S);?
     Dates: start: 20230525, end: 20230525
  2. ATORVASTATIN [Concomitant]
     Active Substance: ATORVASTATIN
  3. ATOMOXETINE [Concomitant]
     Active Substance: ATOMOXETINE
  4. ALLOPURINOL [Concomitant]
     Active Substance: ALLOPURINOL
  5. DESLORATADINE [Concomitant]
     Active Substance: DESLORATADINE
  6. BUPROPION [Concomitant]
     Active Substance: BUPROPION
  7. HYDROCHLOROTHIAZIDE\LISINOPRIL [Concomitant]
     Active Substance: HYDROCHLOROTHIAZIDE\LISINOPRIL
  8. PROBIOTICS NOS [Concomitant]
     Active Substance: PROBIOTICS NOS
  9. FISH OIL [Concomitant]
     Active Substance: FISH OIL
  10. OXYTOCIN [Suspect]
     Active Substance: OXYTOCIN
  11. ARGININE [Suspect]
     Active Substance: ARGININE

REACTIONS (1)
  - Penile haematoma [None]

NARRATIVE: CASE EVENT DATE: 20230525
